FAERS Safety Report 14999802 (Version 2)
Quarter: 2018Q2

REPORT INFORMATION
  Report Type: Spontaneous
  Country: NL (occurrence: NL)
  Receive Date: 20180612
  Receipt Date: 20180622
  Transmission Date: 20180711
  Serious: Yes (Life-Threatening, Hospitalization)
  Sender: FDA-Public Use
  Company Number: NL-TEVA-2018-NL-904260

PATIENT
  Age: 27 Year
  Sex: Male

DRUGS (1)
  1. BACLOFEN. [Suspect]
     Active Substance: BACLOFEN
     Indication: SUICIDE ATTEMPT
     Dosage: TOTAL DOSE- 850MG
     Route: 048

REACTIONS (6)
  - Intentional overdose [Recovering/Resolving]
  - Unresponsive to stimuli [Recovering/Resolving]
  - Hypertension [Recovering/Resolving]
  - Suicide attempt [Recovering/Resolving]
  - Toxicity to various agents [Recovering/Resolving]
  - Respiratory failure [Recovering/Resolving]
